FAERS Safety Report 24841135 (Version 1)
Quarter: 2025Q1

REPORT INFORMATION
  Report Type: Spontaneous
  Country: GB (occurrence: GB)
  Receive Date: 20250114
  Receipt Date: 20250114
  Transmission Date: 20250409
  Serious: Yes (Death, Other)
  Sender: BAYER HEALTHCARE PHARMACEUTICALS INC.
  Company Number: None

PATIENT
  Age: 44 Year
  Sex: Female
  Weight: 88 kg

DRUGS (10)
  1. GADOBUTROL [Suspect]
     Active Substance: GADOBUTROL
     Indication: Cardiac stress test
     Dates: start: 20241210, end: 20241210
  2. GADOBUTROL [Suspect]
     Active Substance: GADOBUTROL
     Indication: Scan myocardial perfusion
  3. ADENOSINE [Suspect]
     Active Substance: ADENOSINE
     Indication: Cardiac stress test
     Dates: start: 20241210, end: 20241210
  4. ADENOSINE [Suspect]
     Active Substance: ADENOSINE
     Indication: Scan myocardial perfusion
  5. OZEMPIC [Concomitant]
     Active Substance: SEMAGLUTIDE
  6. DOXAZOSIN [Concomitant]
     Active Substance: DOXAZOSIN MESYLATE
  7. BISOPROLOL [Concomitant]
     Active Substance: BISOPROLOL
  8. RAMIPRIL [Concomitant]
     Active Substance: RAMIPRIL
  9. AMLODIPINE [Concomitant]
     Active Substance: AMLODIPINE BESYLATE
  10. RANOLAZINE [Concomitant]
     Active Substance: RANOLAZINE

REACTIONS (3)
  - Death [Fatal]
  - Loss of consciousness [Unknown]
  - Malaise [Unknown]

NARRATIVE: CASE EVENT DATE: 20241210
